FAERS Safety Report 5628417-8 (Version None)
Quarter: 2008Q1

REPORT INFORMATION
  Report Type: 
  Country: None (occurrence: None)
  Receive Date: 20080215
  Receipt Date: 20080209
  Transmission Date: 20080703
  Serious: No
  Sender: FDA-Public Use
  Company Number: US-PFIZER INC-2007104326

PATIENT
  Sex: Female
  Weight: 92.1 kg

DRUGS (8)
  1. GENOTROPIN [Suspect]
     Route: 058
  2. HYDROCHLOROTHIAZIDE [Concomitant]
  3. VITAMIN B-12 [Concomitant]
     Route: 048
  4. ASCORBIC ACID [Concomitant]
  5. VITAMIN D [Concomitant]
  6. TOPROL-XL [Concomitant]
     Route: 048
  7. LISINOPRIL [Concomitant]
     Route: 048
  8. LOVASTATIN [Concomitant]
     Route: 048

REACTIONS (1)
  - NO ADVERSE EVENT [None]
